FAERS Safety Report 9302034 (Version 2)
Quarter: 2013Q2

REPORT INFORMATION
  Report Type: Spontaneous
  Country: US (occurrence: US)
  Receive Date: 20130521
  Receipt Date: 20130621
  Transmission Date: 20140414
  Serious: Yes (Death, Hospitalization)
  Sender: FDA-Public Use
  Company Number: US-B.I. PHARMACEUTICALS,INC./RIDGEFIELD-2013-BI-13496BP

PATIENT
  Age: 61 Year
  Sex: Male
  Weight: 55 kg

DRUGS (3)
  1. SPIRIVA [Suspect]
     Indication: CHRONIC OBSTRUCTIVE PULMONARY DISEASE
     Dosage: 18 MCG
     Route: 055
     Dates: start: 2012
  2. ADVAIR [Concomitant]
     Indication: CHRONIC OBSTRUCTIVE PULMONARY DISEASE
     Dosage: STRENGTH: 250 MCG / 50 MCG; DAILY DOSE: 500 MCG / 100 MCG
     Route: 055
     Dates: start: 201201
  3. VENTOLIN [Concomitant]
     Indication: CHRONIC OBSTRUCTIVE PULMONARY DISEASE
     Dosage: 180 MCG
     Route: 055
     Dates: start: 201201

REACTIONS (8)
  - Carbon dioxide increased [Fatal]
  - Back pain [Recovered/Resolved]
  - Sinus headache [Recovered/Resolved]
  - Pulmonary congestion [Recovered/Resolved]
  - Abdominal pain [Recovered/Resolved]
  - Insomnia [Recovered/Resolved]
  - Abnormal loss of weight [Not Recovered/Not Resolved]
  - Oxygen saturation decreased [Recovered/Resolved]
